FAERS Safety Report 6763365-1 (Version None)
Quarter: 2010Q2

REPORT INFORMATION
  Report Type: 
  Country: None (occurrence: None)
  Receive Date: 20100608
  Receipt Date: 20100608
  Transmission Date: 20101027
  Serious: Yes (Disabling)
  Sender: FDA-Public Use
  Company Number: None

PATIENT
  Age: 49 Year
  Sex: Female
  Weight: 95 kg

DRUGS (1)
  1. VOTRIENT [Suspect]
     Indication: RENAL CELL CARCINOMA
     Dosage: 800 MG ONCE DAILY PO
     Route: 048
     Dates: start: 20100606, end: 20100606

REACTIONS (3)
  - ERYTHEMA [None]
  - EUPHORIC MOOD [None]
  - PRURITUS [None]
